FAERS Safety Report 11029466 (Version 4)
Quarter: 2015Q4

REPORT INFORMATION
  Report Type: Report from Study
  Country: US (occurrence: US)
  Receive Date: 20150415
  Receipt Date: 20151012
  Transmission Date: 20160304
  Serious: Yes (Hospitalization, Other)
  Sender: FDA-Public Use
  Company Number: US-UNITED THERAPEUTICS-UNT-2015-000772

PATIENT
  Age: 45 Year
  Sex: Female
  Weight: 87.71 kg

DRUGS (33)
  1. TYVASO [Suspect]
     Active Substance: TREPROSTINIL
     Indication: PULMONARY ARTERIAL HYPERTENSION
     Dosage: 18-54 ?G, QID
     Dates: start: 20140813
  2. BLINDED PLACEBO [Suspect]
     Active Substance: INVESTIGATIONAL PRODUCT
     Indication: PULMONARY ARTERIAL HYPERTENSION
     Dosage: 120 ?G TOTAL DAILY DOSE
     Route: 048
     Dates: start: 20141113
  3. DEXAMETHASONE. [Concomitant]
     Active Substance: DEXAMETHASONE
     Indication: PROCEDURAL PAIN
     Dosage: 8 MG, ONE TIME DOSE
     Route: 041
     Dates: start: 20150126, end: 20150126
  4. METOPROLOL [Concomitant]
     Active Substance: METOPROLOL
     Indication: PROCEDURAL HYPERTENSION
     Dosage: 3 MG, ONE TIME DOSE
     Route: 041
     Dates: start: 20150126, end: 20150126
  5. CEFUROXIME. [Concomitant]
     Active Substance: CEFUROXIME
     Indication: PROPHYLAXIS
     Dosage: 1.5 G, BID
     Route: 041
     Dates: start: 20150127, end: 20150127
  6. SILENOR [Concomitant]
     Active Substance: DOXEPIN HYDROCHLORIDE
     Indication: INSOMNIA
     Dosage: 10 MG TOTAL DAILY DOSE
     Route: 048
     Dates: start: 20141111
  7. XELJANZ [Concomitant]
     Active Substance: TOFACITINIB CITRATE
     Indication: RHEUMATOID ARTHRITIS
     Dosage: 5 MG TOTAL DAILY DOSE
     Route: 048
     Dates: start: 20141211, end: 20141228
  8. TYVASO [Suspect]
     Active Substance: TREPROSTINIL
     Dosage: 18 ?G, QID
  9. PERCOCET                           /00446701/ [Concomitant]
     Active Substance: ACETAMINOPHEN\OXYCODONE HYDROCHLORIDE\OXYCODONE TEREPHTHALATE
     Indication: RHEUMATOID ARTHRITIS
     Dosage: 10/325 MG AS NEEDED DAILY
     Route: 048
     Dates: start: 2010
  10. POTASSIUM [Concomitant]
     Active Substance: POTASSIUM
     Indication: SUPPLEMENTATION THERAPY
     Dosage: 40 MEQ TOTAL DAILY DOSE
     Route: 048
     Dates: start: 2012
  11. COZAAR [Concomitant]
     Active Substance: LOSARTAN POTASSIUM
     Indication: HYPERTENSION
     Dosage: 50 MG TOTAL DAILY DOSE
     Route: 048
     Dates: start: 20140723
  12. ZOLOFT [Concomitant]
     Active Substance: SERTRALINE HYDROCHLORIDE
     Indication: DEPRESSION
     Dosage: 50 MG TOTAL DAILY DOSE
     Route: 048
     Dates: start: 20141111
  13. OXYCONTIN [Concomitant]
     Active Substance: OXYCODONE HYDROCHLORIDE
     Indication: RHEUMATOID ARTHRITIS
     Dosage: 30 MG TOTAL DAILY DOSE
     Route: 048
     Dates: start: 20141110
  14. FLONASE                            /00908302/ [Concomitant]
     Active Substance: MOMETASONE FUROATE
     Dosage: 200 ?G TOTAL DAILY DOSE
     Route: 045
  15. FAMOTIDINE. [Concomitant]
     Active Substance: FAMOTIDINE
     Indication: PROCEDURAL VOMITING
  16. METOPROLOL [Concomitant]
     Active Substance: METOPROLOL
     Indication: ANAESTHESIA
     Dosage: 2 MG, ONE TIME DOSE
     Route: 041
     Dates: start: 20150126, end: 20150126
  17. LETAIRIS [Concomitant]
     Active Substance: AMBRISENTAN
     Indication: PULMONARY ARTERIAL HYPERTENSION
     Dosage: 10 MG TOTAL DAILY DOSE
     Route: 048
     Dates: start: 2012
  18. ARAVA [Concomitant]
     Active Substance: LEFLUNOMIDE
     Indication: RHEUMATOID ARTHRITIS
     Dosage: 20 MG TOTAL DAILY DOSE
     Route: 048
     Dates: start: 20080521
  19. FLONASE                            /00908302/ [Concomitant]
     Active Substance: MOMETASONE FUROATE
     Indication: NASAL CONGESTION
     Dosage: 100 ?G TOTAL DAILY DOSE
     Route: 045
     Dates: start: 20150106
  20. TYVASO [Suspect]
     Active Substance: TREPROSTINIL
     Dosage: 216 ?G TOTAL DAILY DOSE
     Dates: start: 20140926
  21. BLINDED BERAPROST SODIUM [Suspect]
     Active Substance: BERAPROST SODIUM
     Indication: PULMONARY ARTERIAL HYPERTENSION
     Dosage: 120 ?G TOTAL DAILY DOSE
     Route: 048
     Dates: start: 20141113
  22. ZOLOFT [Concomitant]
     Active Substance: SERTRALINE HYDROCHLORIDE
     Dosage: 100 MG TOTAL DAILY DOSE
     Route: 048
  23. ENOXAPARIN [Concomitant]
     Active Substance: ENOXAPARIN
     Indication: PROPHYLAXIS
     Dosage: 40 MG, QD
     Route: 058
     Dates: start: 20150122, end: 20150130
  24. COLACE [Concomitant]
     Active Substance: DOCUSATE SODIUM
     Indication: FAECES HARD
     Dosage: 100 MG TOTAL DAILY DOSE
     Route: 048
     Dates: start: 20150128
  25. COLACE [Concomitant]
     Active Substance: DOCUSATE SODIUM
     Dosage: 200 MG TOTAL DAILY DOSE
     Route: 048
  26. PROTONIX [Concomitant]
     Active Substance: PANTOPRAZOLE SODIUM
     Indication: PEPTIC ULCER
     Dosage: 80 MG TOTAL DAILY DOSE
     Route: 048
     Dates: start: 20150131
  27. REVATIO [Concomitant]
     Active Substance: SILDENAFIL CITRATE
     Indication: PULMONARY ARTERIAL HYPERTENSION
     Dosage: 60 MG TOTAL DAILY DOSE
     Route: 048
     Dates: start: 2012
  28. LASIX [Concomitant]
     Active Substance: FUROSEMIDE
     Indication: PULMONARY ARTERIAL HYPERTENSION
     Dosage: 80 MG TOTAL DAILY DOSE
     Route: 048
     Dates: start: 2012
  29. ERYTHROMYCIN. [Concomitant]
     Active Substance: ERYTHROMYCIN
     Indication: SINUSITIS
     Dosage: 250 MG TOTAL DAILY DOSE
     Route: 048
     Dates: start: 20150106, end: 20150111
  30. FAMOTIDINE. [Concomitant]
     Active Substance: FAMOTIDINE
     Indication: PROCEDURAL NAUSEA
     Dosage: 20 MG, ONE TIME DOSE
     Route: 041
     Dates: start: 20150126, end: 20150126
  31. NIFEDIPINE. [Concomitant]
     Active Substance: NIFEDIPINE
     Indication: PULMONARY ARTERIAL HYPERTENSION
     Dosage: 20 MG, BID
     Route: 048
     Dates: start: 2012, end: 20141203
  32. OXYCONTIN [Concomitant]
     Active Substance: OXYCODONE HYDROCHLORIDE
     Indication: PAIN
     Dosage: 15 MG, BID
     Route: 048
  33. TYVASO [Suspect]
     Active Substance: TREPROSTINIL
     Dosage: 18-54 ?G, QID

REACTIONS (5)
  - Pneumothorax [Not Recovered/Not Resolved]
  - Gastrointestinal haemorrhage [Unknown]
  - Pleural fibrosis [Unknown]
  - Dyspnoea [Not Recovered/Not Resolved]
  - Constipation [Recovered/Resolved]

NARRATIVE: CASE EVENT DATE: 20150118
